FAERS Safety Report 8224990-4 (Version None)
Quarter: 2012Q1

REPORT INFORMATION
  Report Type: 
  Country: None (occurrence: None)
  Receive Date: 20120321
  Receipt Date: 20120319
  Transmission Date: 20120608
  Serious: Yes (Other)
  Sender: FDA-Public Use
  Company Number: US-TEVA-321788USA

PATIENT
  Sex: Male

DRUGS (1)
  1. CLARAVIS [Suspect]
     Route: 048
     Dates: end: 20120209

REACTIONS (4)
  - DEPRESSION [None]
  - SELF-INJURIOUS IDEATION [None]
  - ABNORMAL DREAMS [None]
  - VIOLENCE-RELATED SYMPTOM [None]
